FAERS Safety Report 10237300 (Version 2)
Quarter: 2014Q4

REPORT INFORMATION
  Report Type: Spontaneous
  Country: US (occurrence: US)
  Receive Date: 20140613
  Receipt Date: 20141002
  Transmission Date: 20150528
  Serious: Yes (Hospitalization, Other)
  Sender: FDA-Public Use
  Company Number: US-GILEAD-2014-0105195

PATIENT
  Age: 50 Year
  Sex: Male

DRUGS (7)
  1. LISINOPRIL. [Concomitant]
     Active Substance: LISINOPRIL
  2. CATAPRES                           /00171101/ [Concomitant]
     Active Substance: CLONIDINE
  3. LETAIRIS [Suspect]
     Active Substance: AMBRISENTAN
     Indication: COR PULMONALE CHRONIC
  4. MINOXIDIL. [Concomitant]
     Active Substance: MINOXIDIL
  5. LETAIRIS [Suspect]
     Active Substance: AMBRISENTAN
     Indication: PULMONARY HYPERTENSION
     Dosage: 5 MG, QD
     Route: 065
     Dates: start: 20131029
  6. ADCIRCA [Concomitant]
     Active Substance: TADALAFIL
  7. LOPRESSOR [Concomitant]
     Active Substance: METOPROLOL TARTRATE

REACTIONS (1)
  - Dialysis device insertion [Recovered/Resolved]

NARRATIVE: CASE EVENT DATE: 20140522
